FAERS Safety Report 9624732 (Version 1)
Quarter: 2013Q4

REPORT INFORMATION
  Report Type: Spontaneous
  Country: US (occurrence: US)
  Receive Date: 20131015
  Receipt Date: 20131015
  Transmission Date: 20140711
  Serious: Yes (Other)
  Sender: FDA-Public Use
  Company Number: US-JNJFOC-20131002023

PATIENT
  Sex: 0

DRUGS (1)
  1. BENADRYL [Suspect]
     Indication: PRODUCT USED FOR UNKNOWN INDICATION
     Route: 065

REACTIONS (5)
  - Memory impairment [Unknown]
  - Decreased appetite [Unknown]
  - Akathisia [Unknown]
  - Intentional overdose [Unknown]
  - Hallucination, visual [Unknown]
